FAERS Safety Report 19045574 (Version 1)
Quarter: 2021Q1

REPORT INFORMATION
  Report Type: Report from Study
  Country: PH (occurrence: PH)
  Receive Date: 20210322
  Receipt Date: 20210322
  Transmission Date: 20210420
  Serious: Yes (Death, Other)
  Sender: FDA-Public Use
  Company Number: PH-SEATTLE GENETICS-2021SGN01323

PATIENT
  Age: 64 Year
  Sex: Male

DRUGS (1)
  1. BRENTUXIMAB VEDOTIN [Suspect]
     Active Substance: BRENTUXIMAB VEDOTIN
     Indication: CUTANEOUS T-CELL LYMPHOMA
     Dosage: UNK
     Route: 042
     Dates: start: 20210129

REACTIONS (4)
  - Asthenia [Unknown]
  - Peripheral arterial occlusive disease [Unknown]
  - Tremor [Unknown]
  - Death [Fatal]

NARRATIVE: CASE EVENT DATE: 20210301
